FAERS Safety Report 13855774 (Version 1)
Quarter: 2017Q3

REPORT INFORMATION
  Report Type: Spontaneous
  Country: US (occurrence: US)
  Receive Date: 20170810
  Receipt Date: 20170810
  Transmission Date: 20171127
  Serious: No
  Sender: FDA-Public Use
  Company Number: US-VIFOR (INTERNATIONAL) INC.-VIT-2017-00206

PATIENT
  Age: 78 Year
  Sex: Male

DRUGS (21)
  1. GABAPENTIN. [Concomitant]
     Active Substance: GABAPENTIN
  2. MAGNESIUM [Concomitant]
     Active Substance: MAGNESIUM
  3. TAMSULOSIN [Concomitant]
     Active Substance: TAMSULOSIN
  4. PRIMIDONE. [Concomitant]
     Active Substance: PRIMIDONE
  5. ALLOPURINOL. [Concomitant]
     Active Substance: ALLOPURINOL
  6. TEMAZEPAM. [Concomitant]
     Active Substance: TEMAZEPAM
  7. VESICARE [Concomitant]
     Active Substance: SOLIFENACIN SUCCINATE
  8. VELTASSA [Suspect]
     Active Substance: PATIROMER
     Indication: HYPERKALAEMIA
     Route: 048
     Dates: start: 20161219, end: 20161227
  9. LEVEMIR [Concomitant]
     Active Substance: INSULIN DETEMIR
  10. PREDNISONE. [Concomitant]
     Active Substance: PREDNISONE
     Indication: PEMPHIGOID
     Dates: end: 201612
  11. SIMVASTATIN. [Concomitant]
     Active Substance: SIMVASTATIN
  12. LEVOTHYROXINE. [Concomitant]
     Active Substance: LEVOTHYROXINE
  13. ERGOCALCIFEROL. [Concomitant]
     Active Substance: ERGOCALCIFEROL
  14. XARELTO [Concomitant]
     Active Substance: RIVAROXABAN
  15. NOVOLOG [Concomitant]
     Active Substance: INSULIN ASPART
  16. CYANOCOBALAMIN. [Concomitant]
     Active Substance: CYANOCOBALAMIN
  17. FEXOFENADINE [Concomitant]
     Active Substance: FEXOFENADINE\FEXOFENADINE HYDROCHLORIDE
  18. CENTRUM SILVER [Concomitant]
     Active Substance: MINERALS\VITAMINS
  19. PROPRANOLOL [Concomitant]
     Active Substance: PROPRANOLOL HYDROCHLORIDE
  20. DIGOXIN. [Concomitant]
     Active Substance: DIGOXIN
  21. LORAZEPAM. [Concomitant]
     Active Substance: LORAZEPAM

REACTIONS (12)
  - Drug interaction [Recovering/Resolving]
  - Tongue erythema [Recovering/Resolving]
  - Rash pruritic [Not Recovered/Not Resolved]
  - Decreased appetite [Unknown]
  - Oral mucosal eruption [Recovering/Resolving]
  - Oral discomfort [Recovering/Resolving]
  - Oral mucosal exfoliation [Recovering/Resolving]
  - Inappropriate schedule of drug administration [Unknown]
  - Eating disorder [Recovering/Resolving]
  - Product quality issue [Unknown]
  - Dysgeusia [Not Recovered/Not Resolved]
  - Abdominal discomfort [Not Recovered/Not Resolved]

NARRATIVE: CASE EVENT DATE: 201612
